FAERS Safety Report 7764588-5 (Version None)
Quarter: 2011Q3

REPORT INFORMATION
  Report Type: 
  Country: None (occurrence: None)
  Receive Date: 20110921
  Receipt Date: 20110902
  Transmission Date: 20111222
  Serious: Yes (Other)
  Sender: FDA-Public Use
  Company Number: US-JNJFOC-20110403876

PATIENT
  Sex: Male
  Weight: 146.51 kg

DRUGS (18)
  1. LEVAQUIN [Suspect]
     Indication: SINUSITIS
     Route: 065
     Dates: start: 20080919
  2. ALBUTEROL [Concomitant]
     Route: 065
  3. FLUOCINONIDE [Concomitant]
     Route: 065
  4. LEVAQUIN [Suspect]
     Route: 065
     Dates: start: 20070315
  5. DECONAMINE SR [Concomitant]
     Dosage: PRN
     Route: 048
  6. LEVAQUIN [Suspect]
     Route: 065
     Dates: start: 20070308
  7. FLONASE [Suspect]
     Indication: PRODUCT USED FOR UNKNOWN INDICATION
     Route: 045
  8. LEVAQUIN [Suspect]
     Route: 065
     Dates: start: 20070322
  9. LEVAQUIN [Suspect]
     Route: 065
     Dates: start: 20100720
  10. VERAMYST NOS [Suspect]
     Indication: PRODUCT USED FOR UNKNOWN INDICATION
     Route: 045
  11. DYAZIDE [Concomitant]
     Route: 048
  12. LEVAQUIN [Suspect]
     Route: 065
     Dates: start: 20100720
  13. HYDROCORTISONE [Suspect]
     Indication: PRODUCT USED FOR UNKNOWN INDICATION
     Route: 065
  14. LEVAQUIN [Suspect]
     Route: 065
     Dates: start: 20070315
  15. LEVAQUIN [Suspect]
     Route: 065
     Dates: start: 20080919
  16. LEVAQUIN [Suspect]
     Route: 065
     Dates: start: 20070322
  17. VIAGRA [Concomitant]
     Dosage: AS NEEDED 1 HOUR PRIOR TO INTERCOURSE
     Route: 065
  18. LEVAQUIN [Suspect]
     Route: 065
     Dates: start: 20070308

REACTIONS (14)
  - FALL [None]
  - PERIPHERAL COLDNESS [None]
  - BACK PAIN [None]
  - TENDONITIS [None]
  - TENDON CALCIFICATION [None]
  - MYALGIA [None]
  - PARAESTHESIA [None]
  - SENSORY LOSS [None]
  - HYPOAESTHESIA [None]
  - LIGAMENT SPRAIN [None]
  - PLANTAR FASCIITIS [None]
  - PALMAR FASCIITIS [None]
  - ARTHRALGIA [None]
  - JOINT SWELLING [None]
